FAERS Safety Report 15323632 (Version 1)
Quarter: 2018Q3

REPORT INFORMATION
  Report Type: Spontaneous
  Country: DE (occurrence: DE)
  Receive Date: 20180827
  Receipt Date: 20180827
  Transmission Date: 20181010
  Serious: Yes (Other)
  Sender: FDA-Public Use
  Company Number: PHHY2018DE081556

PATIENT
  Age: 92 Year
  Sex: Female

DRUGS (3)
  1. METOPROLOLSUCCINAT 1A PHARMA [Suspect]
     Active Substance: METOPROLOL SUCCINATE
     Dosage: 1 DF, BID (47.5 MG, BID)
     Route: 065
  2. ASPIRIN. [Concomitant]
     Active Substance: ASPIRIN
     Indication: PRODUCT USED FOR UNKNOWN INDICATION
     Dosage: UNK
     Route: 065
  3. METOPROLOLSUCCINAT 1A PHARMA [Suspect]
     Active Substance: METOPROLOL SUCCINATE
     Indication: PRODUCT USED FOR UNKNOWN INDICATION
     Dosage: 0.5 DF, BID (95 MG)
     Route: 065

REACTIONS (3)
  - Choking [Unknown]
  - Alopecia [Not Recovered/Not Resolved]
  - Dizziness [Not Recovered/Not Resolved]
